FAERS Safety Report 6670794-3 (Version None)
Quarter: 2010Q2

REPORT INFORMATION
  Report Type: 
  Country: None (occurrence: None)
  Receive Date: 20100407
  Receipt Date: 20100325
  Transmission Date: 20101027
  Serious: No
  Sender: FDA-Public Use
  Company Number: US-B.I. PHARMACEUTICALS,INC./RIDGEFIELD-2010-BP-03510BP

PATIENT
  Sex: Female

DRUGS (3)
  1. SPIRIVA [Suspect]
     Indication: CHRONIC OBSTRUCTIVE PULMONARY DISEASE
     Dosage: 18 MCG
     Route: 055
     Dates: start: 20100324
  2. BENADRYL [Concomitant]
     Indication: INSOMNIA
  3. TYLENOL-500 [Concomitant]
     Indication: INSOMNIA

REACTIONS (2)
  - INSOMNIA [None]
  - PALPITATIONS [None]
